FAERS Safety Report 15100122 (Version 1)
Quarter: 2018Q3

REPORT INFORMATION
  Report Type: Spontaneous
  Country: JP (occurrence: JP)
  Receive Date: 20180703
  Receipt Date: 20180703
  Transmission Date: 20181010
  Serious: Yes (Life-Threatening, Hospitalization)
  Sender: FDA-Public Use
  Company Number: JP-ROCHE-2136103

PATIENT
  Age: 65 Year
  Sex: Male

DRUGS (82)
  1. METOLATE [Suspect]
     Active Substance: METHOTREXATE
     Indication: RHEUMATOID ARTHRITIS
     Route: 048
  2. DECADRON [Concomitant]
     Active Substance: DEXAMETHASONE
     Route: 048
     Dates: start: 20180402, end: 20180404
  3. ISOTONIC SODIUM CHLORIDE SOLUTION KIT H [Concomitant]
     Dosage: DOSE INTERVAL UNCERTAINTY
     Route: 041
     Dates: start: 20180514, end: 20180514
  4. ISOTONIC SODIUM CHLORIDE SOLUTION KIT H [Concomitant]
     Dosage: DOSAGE IS UNCERTAIN.
     Route: 041
     Dates: start: 20180609, end: 20180609
  5. HACHIAZULE [Concomitant]
     Route: 049
     Dates: start: 20180423, end: 20180513
  6. XYLOCAINE [Concomitant]
     Active Substance: LIDOCAINE HYDROCHLORIDE
     Dosage: DOSE INTERVAL UNCERTAINTY
     Route: 065
     Dates: start: 20180531, end: 20180613
  7. CALONAL [Concomitant]
     Active Substance: ACETAMINOPHEN
     Route: 048
     Dates: start: 20180602, end: 20180602
  8. CALONAL [Concomitant]
     Active Substance: ACETAMINOPHEN
     Route: 048
     Dates: start: 20180614, end: 20180619
  9. DICLOFENAC SODIUM. [Concomitant]
     Active Substance: DICLOFENAC SODIUM
     Dosage: TAKEN FOR FEVER OR PAIN
     Route: 054
     Dates: start: 20180606, end: 20180606
  10. LEVOFLOXACIN HEMIHYDRATE [Concomitant]
     Active Substance: LEVOFLOXACIN
     Route: 048
     Dates: start: 20180612, end: 20180616
  11. SODIUM PICOSULFATE [Concomitant]
     Active Substance: SODIUM PICOSULFATE
     Dosage: TAKEN FOR CONSTIPATION
     Route: 048
     Dates: start: 20180612, end: 20180612
  12. MAXIPIME [Concomitant]
     Active Substance: CEFEPIME HYDROCHLORIDE
     Dosage: DOSE INTERVAL UNCERTAINTY
     Route: 041
     Dates: start: 20180607, end: 20180611
  13. LASIX [Concomitant]
     Active Substance: FUROSEMIDE
     Dosage: DOSAGE IS UNCERTAIN.
     Route: 041
     Dates: start: 20180606, end: 20180612
  14. ISOTONIC SODIUM CHLORIDE SOLUTION KIT H [Concomitant]
     Dosage: DOSE INTERVAL UNCERTAINTY
     Route: 041
     Dates: start: 20180423, end: 20180423
  15. ISOTONIC SODIUM CHLORIDE SOLUTION KIT H [Concomitant]
     Dosage: DOSAGE IS UNCERTAIN.
     Route: 041
     Dates: start: 20180531, end: 20180531
  16. ISOTONIC SODIUM CHLORIDE SOLUTION KIT H [Concomitant]
     Dosage: DOSAGE IS UNCERTAIN.
     Route: 041
     Dates: start: 20180602, end: 20180603
  17. ISOTONIC SODIUM CHLORIDE SOLUTION KIT H [Concomitant]
     Dosage: DOSAGE IS UNCERTAIN.
     Route: 041
     Dates: start: 20180606, end: 20180606
  18. ISOTONIC SODIUM CHLORIDE SOLUTION KIT H [Concomitant]
     Dosage: DOSE INTERVAL UNCERTAINTY
     Route: 041
     Dates: start: 20180612, end: 20180614
  19. HACHIAZULE [Concomitant]
     Dosage: DOSE INTERVAL UNCERTAINTY
     Route: 049
     Dates: start: 20180524, end: 20180524
  20. XYLOCAINE [Concomitant]
     Active Substance: LIDOCAINE HYDROCHLORIDE
     Dosage: DOSE INTERVAL UNCERTAINTY
     Route: 065
     Dates: start: 20180524, end: 20180524
  21. CALONAL [Concomitant]
     Active Substance: ACETAMINOPHEN
     Route: 048
     Dates: start: 20180524, end: 20180601
  22. LACTEC [Concomitant]
     Active Substance: CALCIUM CHLORIDE ANHYDROUS\POTASSIUM CHLORIDE\SODIUM CHLORIDE\SODIUM LACTATE
     Dosage: DOSE INTERVAL UNCERTAINTY
     Route: 041
     Dates: start: 20180524, end: 20180524
  23. HEPARIN NA LOCK [Concomitant]
     Active Substance: HEPARIN SODIUM
     Dosage: DOSE INTERVAL UNCERTAINTY
     Route: 041
     Dates: start: 20180524, end: 20180526
  24. NEUTROGIN [Concomitant]
     Active Substance: LENOGRASTIM
     Dosage: DOSE INTERVAL UNCERTAINTY
     Route: 041
     Dates: start: 20180530, end: 20180603
  25. OXALIPLATIN. [Suspect]
     Active Substance: OXALIPLATIN
     Indication: GASTRIC CANCER
     Route: 041
  26. PYDOXAL [Concomitant]
     Active Substance: PYRIDOXAL
     Route: 048
     Dates: start: 20180423, end: 20180603
  27. PREDONINE [Concomitant]
     Active Substance: PREDNISOLONE
     Indication: RHEUMATOID ARTHRITIS
     Route: 048
     Dates: start: 20180524, end: 20180620
  28. TACROLIMUS HYDRATE [Concomitant]
     Active Substance: TACROLIMUS
     Indication: RHEUMATOID ARTHRITIS
     Route: 048
  29. CALONAL [Concomitant]
     Active Substance: ACETAMINOPHEN
     Dosage: DOSE INTERVAL UNCERTAINTY
     Route: 048
     Dates: start: 20180612, end: 20180613
  30. DEXALTIN [Concomitant]
     Active Substance: DEXAMETHASONE
     Dosage: 2?3 TIMES A DAY?DOSAGE IS UNCERTAIN.
     Route: 049
     Dates: start: 20180529, end: 20180604
  31. ALLOPURINOL. [Concomitant]
     Active Substance: ALLOPURINOL
     Dosage: DOSE INTERVAL UNCERTAINTY
     Route: 048
     Dates: start: 20180531, end: 20180613
  32. TELEMINSOFT [Concomitant]
     Active Substance: BISACODYL
     Dosage: TAKEN FOR CONSTIPATION
     Route: 054
     Dates: start: 20180603, end: 20180615
  33. TRAMAL [Concomitant]
     Active Substance: TRAMADOL
     Route: 048
     Dates: start: 20180607, end: 20180619
  34. SOLDEM 1 [Concomitant]
     Active Substance: DEXTROSE\SODIUM CHLORIDE\SODIUM LACTATE
     Dosage: DOSE INTERVAL UNCERTAINTY
     Route: 041
     Dates: start: 20180530, end: 20180530
  35. OMEPRAZOLE SODIUM [Concomitant]
     Active Substance: OMEPRAZOLE SODIUM
     Dosage: DOSE INTERVAL UNCERTAINTY
     Route: 041
     Dates: start: 20180601, end: 20180611
  36. FOLIAMIN [Concomitant]
     Active Substance: FOLIC ACID
     Indication: PROPHYLAXIS
     Route: 048
  37. GRANISETRON HYDROCHLORIDE. [Concomitant]
     Active Substance: GRANISETRON HYDROCHLORIDE
     Dosage: DOSE INTERVAL UNCERTAINTY
     Route: 041
     Dates: start: 20180402, end: 20180514
  38. DEXART [Concomitant]
     Active Substance: DEXAMETHASONE SODIUM PHOSPHATE
     Indication: PROPHYLAXIS
     Dosage: DOSE INTERVAL UNCERTAINTY
     Route: 065
  39. FOLIAMIN [Concomitant]
     Active Substance: FOLIC ACID
     Indication: PROPHYLAXIS
     Route: 048
     Dates: start: 20180524, end: 20180524
  40. L?CARBOCISTEINE [Concomitant]
     Active Substance: CARBOCYSTEINE
     Route: 048
     Dates: start: 20180525, end: 20180529
  41. RINDERON V [Concomitant]
     Active Substance: BETAMETHASONE VALERATE
     Route: 003
     Dates: start: 20180611, end: 20180611
  42. MAXIPIME [Concomitant]
     Active Substance: CEFEPIME HYDROCHLORIDE
     Dosage: DOSE INTERVAL UNCERTAINTY
     Route: 041
     Dates: start: 20180528, end: 20180605
  43. LEUCOVORIN. [Concomitant]
     Active Substance: LEUCOVORIN
     Dosage: DOSE INTERVAL UNCERTAINTY
     Route: 041
     Dates: start: 20180601, end: 20180604
  44. SODIUM CHLORIDE. [Concomitant]
     Active Substance: SODIUM CHLORIDE
     Dosage: DOSE INTERVAL UNCERTAINTY
     Route: 041
     Dates: start: 20180615, end: 20180617
  45. NEO?MINOPHAGEN C [Concomitant]
     Active Substance: AMMONIUM GLYCYRRHIZATE
     Dosage: DOSE INTERVAL UNCERTAINTY
     Route: 041
     Dates: start: 20180614, end: 20180620
  46. PREDNISOLONE. [Concomitant]
     Active Substance: PREDNISOLONE
     Indication: RHEUMATOID ARTHRITIS
     Route: 048
  47. ISOTONIC SODIUM CHLORIDE SOLUTION KIT H [Concomitant]
     Dosage: DOSE INTERVAL UNCERTAINTY
     Route: 041
     Dates: start: 20180528, end: 20180529
  48. ISOTONIC SODIUM CHLORIDE SOLUTION KIT H [Concomitant]
     Dosage: DOSAGE IS UNCERTAIN.
     Route: 041
     Dates: start: 20180605, end: 20180605
  49. ISOTONIC SODIUM CHLORIDE SOLUTION KIT H [Concomitant]
     Dosage: DOSAGE IS UNCERTAIN.
     Route: 041
     Dates: start: 20180607, end: 20180607
  50. DEXTROMETHORPHAN HYDROBROMIDE. [Concomitant]
     Active Substance: DEXTROMETHORPHAN HYDROBROMIDE
     Route: 048
     Dates: start: 20180525, end: 20180529
  51. HUMULIN R [Concomitant]
     Active Substance: INSULIN HUMAN
     Route: 065
     Dates: start: 20180607, end: 20180607
  52. HIRUDOID (JAPAN) [Concomitant]
     Dosage: 1?2 TIMES A DAY
     Route: 003
     Dates: start: 20180611, end: 20180611
  53. TALION (JAPAN) [Concomitant]
     Active Substance: BEPOTASTINE
     Route: 048
     Dates: start: 20180611, end: 20180617
  54. MIYA?BM [Concomitant]
     Active Substance: CLOSTRIDIUM BUTYRICUM SPORES STRAIN M-55
     Route: 048
     Dates: start: 20180618, end: 20180620
  55. HEPARIN NA LOCK [Concomitant]
     Active Substance: HEPARIN SODIUM
     Dosage: DOSE INTERVAL UNCERTAINTY
     Route: 041
     Dates: start: 20180528, end: 20180530
  56. SOLDEM 1 [Concomitant]
     Active Substance: DEXTROSE\SODIUM CHLORIDE\SODIUM LACTATE
     Dosage: DOSE INTERVAL UNCERTAINTY
     Route: 041
     Dates: start: 20180531, end: 20180604
  57. OMEPRAZOLE SODIUM [Concomitant]
     Active Substance: OMEPRAZOLE SODIUM
     Dosage: DOSE INTERVAL UNCERTAINTY
     Route: 041
     Dates: start: 20180531, end: 20180531
  58. XELODA [Suspect]
     Active Substance: CAPECITABINE
     Indication: GASTRIC CANCER
     Route: 048
  59. DECADRON [Concomitant]
     Active Substance: DEXAMETHASONE
     Route: 048
     Dates: start: 20180514, end: 20180516
  60. ISOTONIC SODIUM CHLORIDE SOLUTION KIT H [Concomitant]
     Dosage: DOSAGE IS UNCERTAIN.
     Route: 041
     Dates: start: 20180601, end: 20180601
  61. ISOTONIC SODIUM CHLORIDE SOLUTION KIT H [Concomitant]
     Dosage: DOSAGE IS UNCERTAIN.
     Route: 041
     Dates: start: 20180604, end: 20180604
  62. CALONAL [Concomitant]
     Active Substance: ACETAMINOPHEN
     Dosage: DOSE INTERVAL UNCERTAINTY
     Route: 048
     Dates: start: 20180607, end: 20180611
  63. DICLOFENAC SODIUM. [Concomitant]
     Active Substance: DICLOFENAC SODIUM
     Dosage: TAKEN FOR FEVER OR PAIN
     Route: 054
     Dates: start: 20180528, end: 20180604
  64. CIPROFLOXACIN. [Concomitant]
     Active Substance: CIPROFLOXACIN
     Dosage: DOSE INTERVAL UNCERTAINTY
     Route: 041
     Dates: start: 20180606, end: 20180611
  65. HEPARINOID [Concomitant]
     Active Substance: CHONDROITIN SULFATE (BOVINE)
     Dosage: 3?4 TIMES A DAY
     Route: 003
     Dates: start: 20180402, end: 20180402
  66. HEPARINOID [Concomitant]
     Active Substance: CHONDROITIN SULFATE (BOVINE)
     Dosage: 3?4 TIMES A DAY
     Route: 003
     Dates: start: 20180514, end: 20180514
  67. ISOTONIC SODIUM CHLORIDE SOLUTION KIT H [Concomitant]
     Dosage: DOSE INTERVAL UNCERTAINTY
     Route: 041
     Dates: start: 20180402, end: 20180402
  68. ISOTONIC SODIUM CHLORIDE SOLUTION KIT H [Concomitant]
     Dosage: DOSAGE IS UNCERTAIN.
     Route: 041
     Dates: start: 20180530, end: 20180530
  69. ISOTONIC SODIUM CHLORIDE SOLUTION KIT H [Concomitant]
     Dosage: DOSAGE IS UNCERTAIN.
     Route: 041
     Dates: start: 20180608, end: 20180608
  70. ISOTONIC SODIUM CHLORIDE SOLUTION KIT H [Concomitant]
     Dosage: DOSAGE IS UNCERTAIN.
     Route: 041
     Dates: start: 20180610, end: 20180611
  71. GLUCOSE [Concomitant]
     Active Substance: DEXTROSE
     Dosage: DOSE INTERVAL UNCERTAINTY
     Route: 041
     Dates: start: 20180402, end: 20180514
  72. PURIFIED WATER [Concomitant]
     Active Substance: WATER
     Dosage: DOSE INTERVAL UNCERTAINTY
     Route: 065
     Dates: start: 20180521, end: 20180613
  73. CALONAL [Concomitant]
     Active Substance: ACETAMINOPHEN
     Route: 048
     Dates: start: 20180603, end: 20180606
  74. LEUCOVORIN. [Concomitant]
     Active Substance: LEUCOVORIN
     Dosage: DOSE INTERVAL UNCERTAINTY
     Route: 041
     Dates: start: 20180531, end: 20180531
  75. SODIUM CHLORIDE. [Concomitant]
     Active Substance: SODIUM CHLORIDE
     Dosage: DOSE INTERVAL UNCERTAINTY
     Route: 041
     Dates: start: 20180612, end: 20180614
  76. SCOPOLAMINE BUTYLBROMIDE [Concomitant]
     Active Substance: SCOPOLAMINE
     Dosage: DOSE INTERVAL UNCERTAINTY
     Route: 030
     Dates: start: 20180617, end: 20180617
  77. HEPARINOID [Concomitant]
     Active Substance: CHONDROITIN SULFATE (BOVINE)
     Dosage: 3?4 TIMES A DAY
     Route: 003
     Dates: start: 20180423, end: 20180423
  78. HEPARINOID [Concomitant]
     Active Substance: CHONDROITIN SULFATE (BOVINE)
     Dosage: 3?4 TIMES A DAY
     Route: 003
     Dates: start: 20180611, end: 20180611
  79. HEPARIN NA LOCK [Concomitant]
     Active Substance: HEPARIN SODIUM
     Dosage: DOSE INTERVAL UNCERTAINTY
     Route: 041
     Dates: start: 20180607, end: 20180607
  80. NEUTROGIN [Concomitant]
     Active Substance: LENOGRASTIM
     Dosage: DOSE INTERVAL UNCERTAINTY
     Route: 058
     Dates: start: 20180528, end: 20180529
  81. FUNGUARD [Concomitant]
     Active Substance: MICAFUNGIN SODIUM
     Dosage: DOSE INTERVAL UNCERTAINTY
     Route: 041
     Dates: start: 20180601, end: 20180614
  82. SODIUM CHLORIDE. [Concomitant]
     Active Substance: SODIUM CHLORIDE
     Dosage: DOSE INTERVAL UNCERTAINTY
     Route: 041
     Dates: start: 20180618, end: 20180620

REACTIONS (7)
  - Loss of consciousness [Unknown]
  - Platelet count decreased [Recovered/Resolved]
  - Pain in extremity [Unknown]
  - Musculoskeletal pain [Unknown]
  - Stomatitis [Recovered/Resolved]
  - Malaise [Unknown]
  - Neutrophil count decreased [Recovered/Resolved]

NARRATIVE: CASE EVENT DATE: 20180525
